FAERS Safety Report 18905274 (Version 2)
Quarter: 2021Q1

REPORT INFORMATION
  Report Type: Report from Study
  Country: US (occurrence: US)
  Receive Date: 20210217
  Receipt Date: 20210302
  Transmission Date: 20210420
  Serious: Yes (Other)
  Sender: FDA-Public Use
  Company Number: US-JNJFOC-20210218437

PATIENT
  Age: 53 Year
  Sex: Female

DRUGS (2)
  1. MACITENTAN [Suspect]
     Active Substance: MACITENTAN
     Indication: PULMONARY ARTERIAL HYPERTENSION
     Route: 048
     Dates: start: 20210204
  2. ADEMPAS [Suspect]
     Active Substance: RIOCIGUAT
     Indication: PRODUCT USED FOR UNKNOWN INDICATION
     Route: 065
     Dates: start: 20210217

REACTIONS (13)
  - Dizziness [Unknown]
  - Loss of personal independence in daily activities [Unknown]
  - Decreased appetite [Unknown]
  - Depression [Unknown]
  - Dyspnoea exertional [Unknown]
  - Cough [Unknown]
  - Chest discomfort [Unknown]
  - Nasal congestion [Unknown]
  - Poor quality sleep [Unknown]
  - Ascites [Unknown]
  - Dyspnoea at rest [Unknown]
  - Oedema [Unknown]
  - Orthopnoea [Unknown]
